FAERS Safety Report 24679799 (Version 2)
Quarter: 2025Q1

REPORT INFORMATION
  Report Type: Spontaneous
  Country: BE (occurrence: BE)
  Receive Date: 20241129
  Receipt Date: 20250307
  Transmission Date: 20250409
  Serious: Yes (Other)
  Sender: MYLAN
  Company Number: BE-GRUNENTHAL-2024-126395

PATIENT
  Age: 45 Year
  Sex: Female

DRUGS (10)
  1. TRAMADOL [Suspect]
     Active Substance: TRAMADOL
     Indication: Neuralgia
     Dosage: 100 MILLIGRAM, BID (2/DAY)
  2. TRAMADOL [Suspect]
     Active Substance: TRAMADOL
     Dosage: 50 MILLIGRAM, QID (4/DAY)
     Dates: start: 2004
  3. TRAMADOL [Suspect]
     Active Substance: TRAMADOL
     Dosage: 50 MILLIGRAM, QID (4/DAY)
     Dates: start: 2008
  4. TRAMADOL [Suspect]
     Active Substance: TRAMADOL
     Dosage: 50 MILLIGRAM, QID (4/DAY)
     Dates: start: 2015
  5. FENTANYL [Suspect]
     Active Substance: FENTANYL
     Indication: Neuralgia
  6. BUPRENORPHINE [Suspect]
     Active Substance: BUPRENORPHINE
     Indication: Neuralgia
     Dosage: 35 MICROGRAM, QH (1/HR)
  7. PREGABALIN [Concomitant]
     Active Substance: PREGABALIN
     Indication: Neuralgia
  8. KETAMINE [Concomitant]
     Active Substance: KETAMINE
     Indication: Muscular dystrophy
     Dosage: Q3MONTHS (QUARTERLY)
  9. GABAPENTIN [Concomitant]
     Active Substance: GABAPENTIN
     Indication: Neuralgia
     Dosage: 600 MILLIGRAM, TID (600 MILLIGRAM, 3/DAY)
  10. GABAPENTIN [Concomitant]
     Active Substance: GABAPENTIN

REACTIONS (6)
  - Impaired gastric emptying [Unknown]
  - Sleep disorder [Not Recovered/Not Resolved]
  - Adverse event [Unknown]
  - Therapeutic product effect decreased [Unknown]
  - Nausea [Unknown]
  - Fatigue [Unknown]
